FAERS Safety Report 8719017 (Version 3)
Quarter: 2012Q4

REPORT INFORMATION
  Report Type: 
  Country: US (occurrence: US)
  Receive Date: 20120813
  Receipt Date: 20120902
  Transmission Date: 20130627
  Serious: Yes (Hospitalization, Other)
  Sender: FDA-Public Use
  Company Number: US-AMGEN-USASP2012049840

PATIENT
  Sex: Female

DRUGS (2)
  1. PROLIA [Suspect]
     Indication: OSTEOPOROSIS POSTMENOPAUSAL
  2. CYCLOSPORINE [Concomitant]

REACTIONS (3)
  - Pancreas transplant [Unknown]
  - Renal transplant [Unknown]
  - Renal failure chronic [Unknown]
